FAERS Safety Report 9346082 (Version 2)
Quarter: 2013Q3

REPORT INFORMATION
  Report Type: Spontaneous
  Country: JP (occurrence: JP)
  Receive Date: 20130613
  Receipt Date: 20130701
  Transmission Date: 20140515
  Serious: Yes (Life-Threatening, Hospitalization, Other)
  Sender: FDA-Public Use
  Company Number: JP-BAYER-2013-067211

PATIENT
  Age: 81 Year
  Sex: Male
  Weight: 40 kg

DRUGS (19)
  1. GLUCOBAY [Suspect]
     Indication: DIABETES MELLITUS
     Dosage: 50 MG, TID
     Route: 048
     Dates: start: 20130520, end: 20130527
  2. NESP [Concomitant]
     Indication: RENAL FAILURE CHRONIC
     Dosage: 30 ?G, OW
     Route: 042
     Dates: start: 20130412
  3. NESP [Concomitant]
     Indication: NEPHROGENIC ANAEMIA
  4. MUCODYNE [Concomitant]
     Indication: EMPHYSEMA
     Dosage: 500 MG, TID
     Route: 048
     Dates: start: 20130406, end: 20130601
  5. MUCOSOLVAN L [Concomitant]
     Indication: EMPHYSEMA
     Dosage: 45 MG, QD
     Route: 048
     Dates: start: 20130430, end: 20130601
  6. ALFAROL [Concomitant]
     Indication: RENAL FAILURE CHRONIC
     Dosage: 0.25 ?G, QD
     Route: 048
     Dates: start: 20130511, end: 20130528
  7. ALFAROL [Concomitant]
     Indication: OSTEOPOROSIS
  8. LASIX [Concomitant]
     Indication: RENAL FAILURE CHRONIC
     Dosage: 40 MG, BID
     Route: 048
     Dates: start: 20130518
  9. LASIX [Concomitant]
     Indication: MYOCARDIAL INFARCTION
  10. PREDNISOLONE [Concomitant]
     Indication: RENAL FAILURE CHRONIC
     Dosage: 20 MG, QD
     Route: 048
     Dates: start: 20130511
  11. PREDNISOLONE [Concomitant]
     Indication: TUBULOINTERSTITIAL NEPHRITIS
  12. WARFARIN [Concomitant]
     Indication: ATRIAL FIBRILLATION
     Dosage: 0.5 MG, QD
     Route: 048
     Dates: start: 200907, end: 20130601
  13. BAYASPIRIN [Concomitant]
     Indication: MYOCARDIAL INFARCTION
     Dosage: 100 MG, QD
     Route: 048
     Dates: start: 200907, end: 20130601
  14. PLAVIX [Concomitant]
     Indication: MYOCARDIAL INFARCTION
     Dosage: 75 MG, QD
     Route: 048
     Dates: start: 200907, end: 20130601
  15. DIART [Concomitant]
     Indication: RENAL FAILURE CHRONIC
     Dosage: 60 MG, QD
     Route: 048
     Dates: start: 20130412
  16. DIART [Concomitant]
     Indication: MYOCARDIAL INFARCTION
  17. NORVASC [Concomitant]
     Indication: HYPERTENSION
     Dosage: 2.5 MG, BID
     Route: 048
     Dates: start: 20130420, end: 20130601
  18. ARTIST [Concomitant]
     Indication: HYPERTENSION
     Dosage: 5.0 MG, BID
     Route: 048
     Dates: start: 200907, end: 20130601
  19. PROTECADIN [Concomitant]
     Indication: PROPHYLAXIS AGAINST GASTROINTESTINAL ULCER
     Dosage: 10 MG, BID
     Route: 048
     Dates: start: 20130417, end: 20130528

REACTIONS (2)
  - Agranulocytosis [Recovered/Resolved with Sequelae]
  - Febrile neutropenia [Recovering/Resolving]
